FAERS Safety Report 5227743-4 (Version None)
Quarter: 2007Q1

REPORT INFORMATION
  Report Type: 
  Country: None (occurrence: None)
  Receive Date: 20070202
  Receipt Date: 20070129
  Transmission Date: 20070707
  Serious: Yes (Other)
  Sender: FDA-Public Use
  Company Number: GB-PFIZER INC-2007007691

PATIENT
  Age: 55 Year
  Sex: Female
  Weight: 75 kg

DRUGS (3)
  1. LYRICA [Suspect]
     Indication: PERIPHERAL SENSORY NEUROPATHY
     Route: 048
     Dates: start: 20061221, end: 20061231
  2. CITALOPRAM HYDROBROMIDE [Concomitant]
  3. PROCHLORPERAZINE MALEATE [Concomitant]
     Dates: end: 20061206

REACTIONS (3)
  - ABDOMINAL PAIN [None]
  - DISORIENTATION [None]
  - NAUSEA [None]
